FAERS Safety Report 7051830-1 (Version None)
Quarter: 2010Q4

REPORT INFORMATION
  Report Type: 
  Country: None (occurrence: None)
  Receive Date: 20101019
  Receipt Date: 20101011
  Transmission Date: 20110411
  Serious: Yes (Hospitalization)
  Sender: FDA-Public Use
  Company Number: FR-SANOFI-AVENTIS-2010SA061976

PATIENT
  Age: 82 Year
  Sex: Female

DRUGS (6)
  1. FUROSEMIDE [Suspect]
     Indication: PRODUCT USED FOR UNKNOWN INDICATION
     Route: 048
     Dates: start: 20100902, end: 20100914
  2. BUMEX [Suspect]
     Indication: PRODUCT USED FOR UNKNOWN INDICATION
     Route: 048
     Dates: start: 20100922
  3. KALEORID [Concomitant]
     Indication: ERYSIPELAS
     Route: 048
     Dates: start: 20100902
  4. CIFLOX [Concomitant]
     Indication: ERYSIPELAS
     Route: 048
     Dates: start: 20100820, end: 20100908
  5. VANCOMYCIN [Concomitant]
     Indication: ERYSIPELAS
     Dates: start: 20100820, end: 20100908
  6. PIPERACILLIN AND TAZOBACTAM [Concomitant]
     Indication: ERYSIPELAS
     Dates: start: 20100820, end: 20100908

REACTIONS (5)
  - CONDITION AGGRAVATED [None]
  - ECZEMA [None]
  - EOSINOPHILIA [None]
  - PHOTOSENSITIVITY REACTION [None]
  - PYREXIA [None]
